FAERS Safety Report 5227884-1 (Version None)
Quarter: 2007Q1

REPORT INFORMATION
  Report Type: 
  Country: None (occurrence: None)
  Receive Date: 20070202
  Receipt Date: 20070123
  Transmission Date: 20070707
  Serious: Yes (Hospitalization, Other)
  Sender: FDA-Public Use
  Company Number: MY-PFIZER INC-2006152774

PATIENT
  Sex: Male
  Weight: 73.4 kg

DRUGS (4)
  1. SU-011,248 [Suspect]
     Indication: METASTATIC RENAL CELL CARCINOMA
     Route: 048
  2. NORVASC [Concomitant]
     Route: 048
  3. HYDROCORTISONE [Concomitant]
  4. FLUDROCORTISONE [Concomitant]

REACTIONS (2)
  - MELAENA [None]
  - OESOPHAGITIS [None]
